FAERS Safety Report 21587155 (Version 3)
Quarter: 2023Q1

REPORT INFORMATION
  Report Type: Spontaneous
  Country: CH (occurrence: CH)
  Receive Date: 20221114
  Receipt Date: 20230228
  Transmission Date: 20230418
  Serious: Yes (Hospitalization, Other)
  Sender: FDA-Public Use
  Company Number: CH-NOVOPROD-978204

PATIENT
  Age: 56 Year
  Sex: Male
  Weight: 75 kg

DRUGS (4)
  1. GLUCAGEN HYPOKIT [Suspect]
     Active Substance: GLUCAGON HYDROCHLORIDE
     Indication: Hypoglycaemia
     Dosage: UNK
  2. LANTUS [Concomitant]
     Active Substance: INSULIN GLARGINE
     Indication: Type 1 diabetes mellitus
     Dosage: 16-25 UNITS
     Route: 058
     Dates: start: 2009
  3. ENBREL [Concomitant]
     Active Substance: ETANERCEPT
     Indication: Polyarthritis
     Dosage: UNK
     Route: 058
     Dates: start: 2017
  4. NOVORAPID [Suspect]
     Active Substance: INSULIN ASPART
     Indication: Type 1 diabetes mellitus
     Dosage: 50 IU, TID
     Route: 058
     Dates: start: 2007

REACTIONS (3)
  - Hypoglycaemic seizure [Unknown]
  - Needle issue [Recovered/Resolved]
  - Device defective [Unknown]

NARRATIVE: CASE EVENT DATE: 20221001
